FAERS Safety Report 22187152 (Version 1)
Quarter: 2023Q2

REPORT INFORMATION
  Report Type: Spontaneous
  Country: US (occurrence: US)
  Receive Date: 20230407
  Receipt Date: 20230407
  Transmission Date: 20230721
  Serious: Yes (Disabling)
  Sender: FDA-Public Use
  Company Number: US-TEVA-2023-US-2873897

PATIENT
  Sex: Female

DRUGS (2)
  1. SCOPOLAMINE [Suspect]
     Active Substance: SCOPOLAMINE
     Indication: Vertigo
     Route: 062
  2. SCOPOLAMINE [Suspect]
     Active Substance: SCOPOLAMINE
     Indication: Loss of personal independence in daily activities

REACTIONS (5)
  - Impaired quality of life [Unknown]
  - Urticaria [Unknown]
  - Skin exfoliation [Unknown]
  - Pain [Unknown]
  - Product prescribing issue [Unknown]
